FAERS Safety Report 4826399-X (Version None)
Quarter: 2005Q4

REPORT INFORMATION
  Report Type: 
  Country: None (occurrence: None)
  Receive Date: 20051014
  Receipt Date: 20050714
  Transmission Date: 20060501
  Serious: No
  Sender: FDA-Public Use
  Company Number: 2005SP001892

PATIENT
  Age: 53 Year
  Sex: Female
  Weight: 59.8748 kg

DRUGS (7)
  1. LUNESTA [Suspect]
     Indication: INSOMNIA
     Dosage: 1 MG;HS;ORAL, 1.75 MG;HS;ORAL
     Route: 048
     Dates: start: 20050401, end: 20050101
  2. LUNESTA [Suspect]
     Indication: INSOMNIA
     Dosage: 1 MG;HS;ORAL, 1.75 MG;HS;ORAL
     Route: 048
     Dates: start: 20050101, end: 20050501
  3. AMBIEN [Concomitant]
  4. ANTIDEPRESSANTS [Concomitant]
  5. ANTI-ANXIETY MEDICATION [Concomitant]
  6. ANTI-CANCER MEDICATION [Concomitant]
  7. HERBAL PREPARATION [Concomitant]

REACTIONS (4)
  - DIZZINESS [None]
  - DRUG INEFFECTIVE [None]
  - DYSGEUSIA [None]
  - MIDDLE INSOMNIA [None]
